FAERS Safety Report 12305675 (Version 5)
Quarter: 2016Q2

REPORT INFORMATION
  Report Type: Report from Study
  Country: US (occurrence: US)
  Receive Date: 20160426
  Receipt Date: 20160610
  Transmission Date: 20160815
  Serious: Yes (Hospitalization)
  Sender: FDA-Public Use
  Company Number: US-BAYER-2016-066206

PATIENT
  Age: 57 Year
  Sex: Female
  Weight: 78.46 kg

DRUGS (6)
  1. ADEMPAS [Suspect]
     Active Substance: RIOCIGUAT
     Indication: PULMONARY HYPERTENSION
     Dosage: 1 MG, TID
     Route: 048
  2. ADEMPAS [Suspect]
     Active Substance: RIOCIGUAT
     Indication: PULMONARY HYPERTENSION
     Dosage: 2 MG, TID
     Route: 048
  3. ADEMPAS [Suspect]
     Active Substance: RIOCIGUAT
     Indication: PULMONARY HYPERTENSION
     Dosage: UNK
     Dates: start: 20160323
  4. ADEMPAS [Suspect]
     Active Substance: RIOCIGUAT
     Indication: PULMONARY HYPERTENSION
     Dosage: 0.5 MG, THREE TIMES DAILY
     Route: 048
  5. TYVASO [Suspect]
     Active Substance: TREPROSTINIL
     Indication: PULMONARY HYPERTENSION
     Dosage: 90 ?G, QID
     Route: 055
     Dates: start: 20151207
  6. ADEMPAS [Suspect]
     Active Substance: RIOCIGUAT
     Indication: PULMONARY HYPERTENSION
     Dosage: 1.5 MG, TID
     Route: 048

REACTIONS (14)
  - Fatigue [Unknown]
  - Abdominal distension [Unknown]
  - Fatigue [None]
  - Oedema peripheral [Unknown]
  - Pain in extremity [None]
  - Peripheral swelling [Unknown]
  - Asthenia [Unknown]
  - Product use issue [None]
  - Diarrhoea [Recovered/Resolved]
  - Peripheral swelling [None]
  - Dehydration [Unknown]
  - Headache [None]
  - Oedema peripheral [Recovering/Resolving]
  - Diarrhoea [None]

NARRATIVE: CASE EVENT DATE: 201604
